FAERS Safety Report 9665762 (Version 4)
Quarter: 2013Q4

REPORT INFORMATION
  Report Type: Spontaneous
  Country: CA (occurrence: CA)
  Receive Date: 20131104
  Receipt Date: 20131120
  Transmission Date: 20140711
  Serious: Yes (Other)
  Sender: FDA-Public Use
  Company Number: CA-AMGEN-CANSP2013076610

PATIENT
  Age: 54 Year
  Sex: Male
  Weight: 68 kg

DRUGS (5)
  1. ARANESP [Suspect]
     Indication: NEPHROGENIC ANAEMIA
     Dosage: 120 MUG, Q3WK
     Route: 042
     Dates: start: 20121019, end: 20130830
  2. VALGANCICLOVIR [Concomitant]
     Indication: ANTIVIRAL PROPHYLAXIS
     Route: 048
  3. SEPTRA [Concomitant]
     Indication: DIALYSIS
     Dosage: UNK UNK, TID
     Route: 048
     Dates: start: 20130422, end: 20130618
  4. CIPRO                              /00697201/ [Concomitant]
     Dosage: 400 MG, UNK
     Route: 042
  5. BLOOD TRANSFUSION, AUXILIARY PRODUCTS [Concomitant]
     Dosage: 2 UNITS, Q2WK
     Dates: start: 20130626

REACTIONS (1)
  - Aplasia pure red cell [Not Recovered/Not Resolved]
